FAERS Safety Report 5731669-7 (Version None)
Quarter: 2008Q2

REPORT INFORMATION
  Report Type: 
  Country: None (occurrence: None)
  Receive Date: 20080508
  Receipt Date: 20080502
  Transmission Date: 20081010
  Serious: Yes (Hospitalization)
  Sender: FDA-Public Use
  Company Number: AU-ABBOTT-08P-008-0443006-00

PATIENT
  Sex: Male

DRUGS (2)
  1. KALETRA [Suspect]
     Indication: HIV INFECTION
     Dates: start: 20080312, end: 20080314
  2. ABACAVIR [Concomitant]
     Indication: DRUG USE FOR UNKNOWN INDICATION

REACTIONS (3)
  - ATRIAL FIBRILLATION [None]
  - ATRIOVENTRICULAR BLOCK SECOND DEGREE [None]
  - SICK SINUS SYNDROME [None]
